FAERS Safety Report 8060294-0 (Version None)
Quarter: 2012Q1

REPORT INFORMATION
  Report Type: 
  Country: None (occurrence: None)
  Receive Date: 20120120
  Receipt Date: 20120119
  Transmission Date: 20120608
  Serious: No
  Sender: FDA-Public Use
  Company Number: US-PFIZER INC-2012016416

PATIENT
  Sex: Male
  Weight: 83.9 kg

DRUGS (4)
  1. DEPAKOTE [Concomitant]
     Indication: BIPOLAR I DISORDER
     Dosage: 2000 MG, DAILY
     Route: 048
  2. GEODON [Suspect]
     Dosage: 80 MG, DAILY AT NIGHT
     Dates: start: 20120101
  3. LITHIUM [Concomitant]
     Indication: BIPOLAR I DISORDER
     Dosage: 900 MG, DAILY
  4. GEODON [Suspect]
     Indication: BIPOLAR I DISORDER
     Dosage: 40 MG, 2X/DAY
     Route: 048
     Dates: start: 20120101, end: 20120101

REACTIONS (3)
  - SEXUAL DYSFUNCTION [None]
  - WEIGHT INCREASED [None]
  - SOMNOLENCE [None]
